FAERS Safety Report 18279977 (Version 1)
Quarter: 2020Q3

REPORT INFORMATION
  Report Type: Report from Study
  Country: US (occurrence: US)
  Receive Date: 20200917
  Receipt Date: 20200917
  Transmission Date: 20201103
  Serious: Yes (Hospitalization)
  Sender: FDA-Public Use
  Company Number: US-JNJFOC-A-NJ2019-190104

PATIENT
  Age: 76 Year
  Sex: Female
  Weight: 54.48 kg

DRUGS (4)
  1. VELETRI [Suspect]
     Active Substance: EPOPROSTENOL
     Route: 042
  2. VELETRI [Suspect]
     Active Substance: EPOPROSTENOL
     Route: 042
  3. VELETRI [Suspect]
     Active Substance: EPOPROSTENOL
     Indication: PULMONARY ARTERIAL HYPERTENSION
     Route: 042
  4. VELETRI [Suspect]
     Active Substance: EPOPROSTENOL
     Route: 042

REACTIONS (11)
  - Rash [Unknown]
  - Bone pain [Unknown]
  - Flushing [Unknown]
  - Pain in jaw [Unknown]
  - Device alarm issue [Unknown]
  - Abdominal discomfort [Unknown]
  - Dyspnoea [Recovering/Resolving]
  - Dyspnoea exertional [Unknown]
  - Catheter management [Recovered/Resolved]
  - Pruritus [Unknown]
  - Rash pruritic [Unknown]

NARRATIVE: CASE EVENT DATE: 202008
